FAERS Safety Report 7331615-9 (Version None)
Quarter: 2011Q1

REPORT INFORMATION
  Report Type: 
  Country: None (occurrence: None)
  Receive Date: 20110228
  Receipt Date: 20110228
  Transmission Date: 20110831
  Serious: Yes (Death)
  Sender: FDA-Public Use
  Company Number: None

PATIENT
  Age: 32 Year
  Sex: Female
  Weight: 91.8 kg

DRUGS (1)
  1. SUBOXONE [Suspect]
     Indication: SUBSTANCE ABUSE
     Dosage: 8MG/2MG DAILY SUBLINGUAL 8 DAYS (ON TABLET FORM PRIOR)
     Route: 060

REACTIONS (1)
  - UNRESPONSIVE TO STIMULI [None]
